FAERS Safety Report 7031106-9 (Version None)
Quarter: 2010Q4

REPORT INFORMATION
  Report Type: 
  Country: None (occurrence: None)
  Receive Date: 20101006
  Receipt Date: 20100813
  Transmission Date: 20110411
  Serious: Yes (Death)
  Sender: FDA-Public Use
  Company Number: JP-WYE-H17957510

PATIENT
  Age: 76 Year
  Sex: Female

DRUGS (6)
  1. ANCARON [Suspect]
     Indication: VENTRICULAR TACHYCARDIA
     Dosage: UNKNOWN
     Dates: start: 20100424
  2. AMIODARONE HCL [Suspect]
     Indication: VENTRICULAR TACHYCARDIA
     Dosage: UNKNOWN
     Route: 042
     Dates: start: 20100422, end: 20100424
  3. ASPIRIN [Concomitant]
  4. MUCODYNE [Concomitant]
  5. LASIX [Concomitant]
  6. TAKEPRON [Concomitant]

REACTIONS (1)
  - ACUTE LUNG INJURY [None]
